FAERS Safety Report 6358118-2 (Version None)
Quarter: 2009Q3

REPORT INFORMATION
  Report Type: 
  Country: None (occurrence: None)
  Receive Date: 20090911
  Receipt Date: 20090910
  Transmission Date: 20100115
  Serious: Yes (Hospitalization)
  Sender: FDA-Public Use
  Company Number: AUR-APU-2009-00560

PATIENT
  Age: 25 Day
  Sex: Male

DRUGS (12)
  1. ZIDOVUDINE [Suspect]
     Indication: HUMAN IMMUNODEFICIENCY VIRUS TRANSMISSION
     Dosage: 4 MG/KG - Q12HOURS - FOR 7 DAYS AFTER BIRTH
  2. ZIDOVUDINE [Suspect]
     Indication: PROPHYLAXIS
     Dosage: 4 MG/KG - Q12HOURS - FOR 7 DAYS AFTER BIRTH
  3. NEVIRAPINE [Suspect]
     Indication: HUMAN IMMUNODEFICIENCY VIRUS TRANSMISSION
     Dosage: 2 MG/KG - X1 -  200MG - X1 - TRANSPLACENTALLY 1 DOSE AT ONSET OF LABOR
     Route: 064
  4. NEVIRAPINE [Suspect]
     Indication: PROPHYLAXIS
     Dosage: 2 MG/KG - X1 -  200MG - X1 - TRANSPLACENTALLY 1 DOSE AT ONSET OF LABOR
     Route: 064
  5. TRUVADA [Suspect]
     Indication: HUMAN IMMUNODEFICIENCY VIRUS TRANSMISSION
     Dosage: - X1 - 1 DOSE AFTER BIRTH
  6. TRUVADA [Suspect]
     Indication: PROPHYLAXIS
     Dosage: - X1 - 1 DOSE AFTER BIRTH
  7. ZIDOVUDINE [Suspect]
     Indication: HUMAN IMMUNODEFICIENCY VIRUS TRANSMISSION
     Dosage: 300MG - BID - TRANSPLACENTALLY DURING GESTATION
     Route: 064
  8. ZIDOVUDINE [Suspect]
     Indication: PROPHYLAXIS
     Dosage: 300MG - BID - TRANSPLACENTALLY DURING GESTATION
     Route: 064
  9. TENOFOVIR DISOPROXIL FUMARATE [Suspect]
     Indication: HUMAN IMMUNODEFICIENCY VIRUS TRANSMISSION
     Dosage: 2 TABLETS - X1 - TRANSPLACENTALLY 1 DOSE PRIOR TO DELIVERY
     Route: 064
  10. TENOFOVIR DISOPROXIL FUMARATE [Suspect]
     Indication: PROPHYLAXIS
     Dosage: 2 TABLETS - X1 - TRANSPLACENTALLY 1 DOSE PRIOR TO DELIVERY
     Route: 064
  11. NEVIRAPINE [Suspect]
     Indication: HUMAN IMMUNODEFICIENCY VIRUS TRANSMISSION
     Dosage: 200 MGX1, TRANSPLACENTALLY
     Route: 064
  12. NEVIRAPINE [Suspect]
     Indication: PROPHYLAXIS
     Dosage: 200 MGX1, TRANSPLACENTALLY
     Route: 064

REACTIONS (4)
  - CAESAREAN SECTION [None]
  - GASTROENTERITIS [None]
  - MATERNAL DRUGS AFFECTING FOETUS [None]
  - NEONATAL DISORDER [None]
